FAERS Safety Report 11153369 (Version 2)
Quarter: 2015Q2

REPORT INFORMATION
  Report Type: Spontaneous
  Country: US (occurrence: US)
  Receive Date: 20150601
  Receipt Date: 20150617
  Transmission Date: 20150821
  Serious: Yes (Hospitalization)
  Sender: FDA-Public Use
  Company Number: US-009507513-1505USA015138

PATIENT
  Age: 56 Year
  Sex: Female

DRUGS (2)
  1. SIVEXTRO [Suspect]
     Active Substance: TEDIZOLID PHOSPHATE
     Indication: OSTEOMYELITIS
  2. SIVEXTRO [Suspect]
     Active Substance: TEDIZOLID PHOSPHATE
     Indication: DEVICE RELATED INFECTION
     Dosage: UNK
     Route: 048
     Dates: start: 201505, end: 201505

REACTIONS (4)
  - Diarrhoea [Unknown]
  - Thrombocytopenia [Recovered/Resolved]
  - Dehydration [Recovered/Resolved]
  - Vomiting [Recovering/Resolving]

NARRATIVE: CASE EVENT DATE: 201505
